FAERS Safety Report 11835242 (Version 1)
Quarter: 2015Q4

REPORT INFORMATION
  Report Type: Spontaneous
  Country: IT (occurrence: IT)
  Receive Date: 20151215
  Receipt Date: 20151215
  Transmission Date: 20160305
  Serious: Yes (Other)
  Sender: FDA-Public Use
  Company Number: IT-ROCHE-1676970

PATIENT
  Age: 32 Year
  Sex: Female

DRUGS (1)
  1. VALIUM [Suspect]
     Active Substance: DIAZEPAM
     Indication: ANXIOLYTIC THERAPY
     Dosage: ^5 MG/ML ORAL DROPS, SOLUTION^ 20 ML BOTTLE
     Route: 048
     Dates: start: 20151017, end: 20151017

REACTIONS (2)
  - Dyspnoea [Unknown]
  - Cardiac disorder [Unknown]

NARRATIVE: CASE EVENT DATE: 20151017
